FAERS Safety Report 8988084 (Version 2)
Quarter: 2013Q1

REPORT INFORMATION
  Report Type: Report from Study
  Country: US (occurrence: US)
  Receive Date: 20121227
  Receipt Date: 20130225
  Transmission Date: 20140127
  Serious: Yes (Death)
  Sender: FDA-Public Use
  Company Number: US-ROCHE-1173435

PATIENT
  Sex: Male
  Weight: 64 kg

DRUGS (2)
  1. AVASTIN [Suspect]
     Indication: ANAPLASTIC ASTROCYTOMA
     Route: 042
     Dates: start: 20110128, end: 20120830
  2. CARBOPLATIN [Concomitant]
     Indication: GLIOBLASTOMA
     Dosage: RECIEVED 2 DOSES
     Route: 042
     Dates: start: 20120810, end: 20120830

REACTIONS (1)
  - Death [Fatal]
